FAERS Safety Report 4694482-8 (Version None)
Quarter: 2005Q2

REPORT INFORMATION
  Report Type: 
  Country: None (occurrence: None)
  Receive Date: 20050620
  Receipt Date: 20050610
  Transmission Date: 20051028
  Serious: Yes (Hospitalization)
  Sender: FDA-Public Use
  Company Number: US-ROCHE-407551

PATIENT
  Age: 64 Year
  Sex: Male

DRUGS (4)
  1. PEGASYS [Suspect]
     Indication: HEPATITIS C
     Dosage: STRENGTH IS REPORTED AS 180 MCG/0.5 ML.
     Route: 065
     Dates: start: 20050510, end: 20050524
  2. COPEGUS [Suspect]
     Indication: HEPATITIS C
     Route: 048
     Dates: start: 20050510, end: 20050524
  3. SYNTHROID [Concomitant]
     Route: 048
     Dates: start: 20030615
  4. ACIPHEX [Concomitant]
     Route: 048
     Dates: start: 20050315

REACTIONS (8)
  - ABDOMINAL PAIN [None]
  - BACK PAIN [None]
  - BILE DUCT OBSTRUCTION [None]
  - INFLUENZA LIKE ILLNESS [None]
  - PANCREATITIS [None]
  - PLATELET COUNT DECREASED [None]
  - RED BLOOD CELL COUNT DECREASED [None]
  - WHITE BLOOD CELL COUNT DECREASED [None]
